FAERS Safety Report 16034623 (Version 1)
Quarter: 2019Q1

REPORT INFORMATION
  Report Type: Spontaneous
  Country: US (occurrence: US)
  Receive Date: 20190305
  Receipt Date: 20190305
  Transmission Date: 20190418
  Serious: No
  Sender: FDA-Public Use
  Company Number: US-SHIRE-US201906954

PATIENT
  Age: 59 Year
  Sex: Female

DRUGS (1)
  1. GAMMAGARD LIQUID [Suspect]
     Active Substance: HUMAN IMMUNOGLOBULIN G
     Indication: PRODUCT USED FOR UNKNOWN INDICATION
     Dosage: 5 GRAM, EVERY 3 WK
     Route: 058
     Dates: start: 20140207, end: 20190224

REACTIONS (3)
  - Throat irritation [Unknown]
  - Pharyngeal oedema [Unknown]
  - Cough [Unknown]
